FAERS Safety Report 7437041-6 (Version None)
Quarter: 2011Q2

REPORT INFORMATION
  Report Type: 
  Country: None (occurrence: None)
  Receive Date: 20110426
  Receipt Date: 20110412
  Transmission Date: 20111010
  Serious: Yes (Hospitalization)
  Sender: FDA-Public Use
  Company Number: BE-CELGENEUS-013-21880-11041253

PATIENT
  Sex: Female

DRUGS (3)
  1. REVLIMID [Suspect]
     Indication: MYELODYSPLASTIC SYNDROME
     Dosage: 5 MILLIGRAM
     Route: 048
  2. VITAMIN D [Concomitant]
     Route: 065
  3. CALCIUM [Concomitant]
     Route: 065

REACTIONS (3)
  - OSTEOPOROSIS [None]
  - SPINAL FRACTURE [None]
  - LUMBAR VERTEBRAL FRACTURE [None]
